FAERS Safety Report 17699754 (Version 2)
Quarter: 2020Q2

REPORT INFORMATION
  Report Type: Spontaneous
  Country: AR (occurrence: AR)
  Receive Date: 20200423
  Receipt Date: 20200501
  Transmission Date: 20200714
  Serious: Yes (Hospitalization)
  Sender: FDA-Public Use
  Company Number: AR-BIOMARINAP-AR-2020-129798

PATIENT
  Age: 5 Year

DRUGS (1)
  1. VIMIZIM [Suspect]
     Active Substance: ELOSULFASE ALFA
     Indication: MUCOPOLYSACCHARIDOSIS IV
     Dosage: 25 MILLIGRAM, QW
     Route: 042
     Dates: start: 20200117

REACTIONS (5)
  - Pneumothorax traumatic [Recovering/Resolving]
  - Fall [Recovering/Resolving]
  - Costal cartilage fracture [Recovering/Resolving]
  - Clavicle fracture [Recovering/Resolving]
  - Victim of abuse [Recovering/Resolving]

NARRATIVE: CASE EVENT DATE: 202004
